FAERS Safety Report 9721997 (Version 1)
Quarter: 2013Q4

REPORT INFORMATION
  Report Type: Report from Study
  Country: KR (occurrence: KR)
  Receive Date: 20131202
  Receipt Date: 20131202
  Transmission Date: 20140711
  Serious: Yes (Other)
  Sender: FDA-Public Use
  Company Number: KR-ROCHE-1309409

PATIENT
  Age: 82 Year
  Sex: Male

DRUGS (4)
  1. RANIBIZUMAB [Suspect]
     Indication: AGE-RELATED MACULAR DEGENERATION
     Route: 050
  2. BEVACIZUMAB [Suspect]
     Indication: PRODUCT USED FOR UNKNOWN INDICATION
     Dosage: INJECTION
     Route: 065
  3. CHIBRO-CADRON [Concomitant]
     Dosage: 2 DROPS
     Route: 065
     Dates: start: 20120606
  4. EMLA PATCH [Concomitant]
     Dosage: 2 DROPS
     Route: 065
     Dates: start: 20131113

REACTIONS (3)
  - Cataract [Unknown]
  - Visual acuity reduced [Not Recovered/Not Resolved]
  - Metamorphopsia [Unknown]
